FAERS Safety Report 6907379-7 (Version None)
Quarter: 2010Q3

REPORT INFORMATION
  Report Type: 
  Country: None (occurrence: None)
  Receive Date: 20100804
  Receipt Date: 20100802
  Transmission Date: 20110219
  Serious: Yes (Death)
  Sender: FDA-Public Use
  Company Number: US-GILEAD-2010-0030444

PATIENT
  Age: 72 Year
  Sex: Male
  Weight: 68.1 kg

DRUGS (17)
  1. LETAIRIS [Suspect]
     Indication: PULMONARY ARTERIAL HYPERTENSION
     Route: 048
     Dates: start: 20090601
  2. LETAIRIS [Suspect]
     Indication: SCLERODERMA
  3. SILDENAFIL CITRATE [Concomitant]
     Indication: PULMONARY HYPERTENSION
  4. FUROSEMIDE [Concomitant]
     Indication: FLUID RETENTION
  5. OXYGEN [Concomitant]
  6. PREDNISONE [Concomitant]
  7. COUMADIN [Concomitant]
  8. FORADIL [Concomitant]
  9. SPIRIVA [Concomitant]
     Indication: NASAL CONGESTION
  10. ALBUTEROL [Concomitant]
     Indication: DYSPNOEA
  11. TIOTROPIUM [Concomitant]
     Indication: DYSPNOEA
  12. DILTIAZEM [Concomitant]
     Indication: BLOOD PRESSURE
  13. LORATADINE [Concomitant]
  14. NEXIUM [Concomitant]
     Indication: GASTRIC PH DECREASED
  15. LEVOTHYROXINE [Concomitant]
  16. VITAMIN D [Concomitant]
  17. FERROUS SULFATE [Concomitant]

REACTIONS (2)
  - ACUTE MYOCARDIAL INFARCTION [None]
  - COR PULMONALE [None]
